FAERS Safety Report 16684539 (Version 6)
Quarter: 2019Q4

REPORT INFORMATION
  Report Type: Spontaneous
  Country: US (occurrence: US)
  Receive Date: 20190808
  Receipt Date: 20191107
  Transmission Date: 20200122
  Serious: Yes (Death, Hospitalization, Other)
  Sender: FDA-Public Use
  Company Number: US-TEVA-2019-US-1088091

PATIENT
  Sex: Female

DRUGS (20)
  1. SYNRIBO [Suspect]
     Active Substance: OMACETAXINE MEPESUCCINATE
     Dosage: DOSAGE: 2.3 MG/0.66 ML BID FOR 7 DAYS
     Route: 065
     Dates: start: 20190920
  2. SYNRIBO [Suspect]
     Active Substance: OMACETAXINE MEPESUCCINATE
     Dosage: DOSAGE: 2.3 MG/0.66 ML BID FOR 14 DAYS
     Route: 065
     Dates: start: 20190703
  3. ACETAMINOPHEN. [Concomitant]
     Active Substance: ACETAMINOPHEN
  4. ASPIRIN. [Concomitant]
     Active Substance: ASPIRIN
  5. SYNRIBO [Suspect]
     Active Substance: OMACETAXINE MEPESUCCINATE
     Dosage: DOSAGE: 2.3 MG/0.66 ML BID FOR 7 DAYS
     Route: 065
     Dates: start: 20190827
  6. ALBUTEROL. [Concomitant]
     Active Substance: ALBUTEROL
  7. CELEBREX [Concomitant]
     Active Substance: CELECOXIB
  8. LASIX [Concomitant]
     Active Substance: FUROSEMIDE
  9. LUNESTA [Concomitant]
     Active Substance: ESZOPICLONE
  10. SYNRIBO [Suspect]
     Active Substance: OMACETAXINE MEPESUCCINATE
     Indication: CHRONIC MYELOID LEUKAEMIA
     Dosage: DOSAGE: 2.3 MG/0.66 ML BID FOR 7 DAYS
     Route: 065
     Dates: start: 20191003
  11. ALLOPURINOL. [Concomitant]
     Active Substance: ALLOPURINOL
  12. ELIQUIS [Concomitant]
     Active Substance: APIXABAN
  13. EMBEDA [Concomitant]
     Active Substance: MORPHINE SULFATE\NALTREXONE HYDROCHLORIDE
  14. IMITREX [Concomitant]
     Active Substance: SUMATRIPTAN SUCCINATE
  15. NEURONTIN [Concomitant]
     Active Substance: GABAPENTIN
  16. WELLBUTRIN [Concomitant]
     Active Substance: BUPROPION HYDROCHLORIDE
  17. AMITIZA [Concomitant]
     Active Substance: LUBIPROSTONE
  18. AMITRIPTYLIN [Concomitant]
     Active Substance: AMITRIPTYLINE
  19. XANAX [Concomitant]
     Active Substance: ALPRAZOLAM
  20. CYMBALTA [Concomitant]
     Active Substance: DULOXETINE HYDROCHLORIDE

REACTIONS (9)
  - Clostridium difficile infection [Unknown]
  - Chapped lips [Unknown]
  - Oral herpes [Unknown]
  - Abscess jaw [Unknown]
  - Staphylococcal infection [Unknown]
  - Neutropenic infection [Unknown]
  - Headache [Unknown]
  - Nausea [Unknown]
  - Completed suicide [Fatal]
